FAERS Safety Report 6845120-7 (Version None)
Quarter: 2010Q3

REPORT INFORMATION
  Report Type: 
  Country: None (occurrence: None)
  Receive Date: 20100715
  Receipt Date: 20070822
  Transmission Date: 20110219
  Serious: Yes (Other)
  Sender: FDA-Public Use
  Company Number: US-PFIZER INC-2007068210

PATIENT
  Sex: Female
  Weight: 90.7 kg

DRUGS (6)
  1. CHANTIX [Suspect]
     Indication: SMOKING CESSATION THERAPY
     Route: 048
     Dates: start: 20070804, end: 20070810
  2. LISINOPRIL [Concomitant]
  3. ACETYLSALICYLIC ACID [Concomitant]
  4. GLIMEPIRIDE [Concomitant]
  5. ADVICOR [Concomitant]
  6. VITAMINS [Concomitant]

REACTIONS (3)
  - BLOOD PRESSURE INCREASED [None]
  - DIZZINESS [None]
  - VOMITING [None]
